FAERS Safety Report 12727627 (Version 1)
Quarter: 2016Q3

REPORT INFORMATION
  Report Type: Spontaneous
  Country: US (occurrence: US)
  Receive Date: 20160909
  Receipt Date: 20160909
  Transmission Date: 20161109
  Serious: No
  Sender: FDA-Public Use
  Company Number: US-PFIZER INC-2016411731

PATIENT
  Age: 68 Year
  Sex: Female

DRUGS (1)
  1. IBRANCE [Suspect]
     Active Substance: PALBOCICLIB
     Indication: BREAST CANCER FEMALE
     Dosage: 125 MG, CYCLIC (TAKE 1 CAPS EVERY DAY FOR 21 DAYS THEN TAKE 7 DAYS OFF AS DIRECTED. TAKE WITH FOOD)
     Route: 048
     Dates: start: 20160808

REACTIONS (2)
  - Disease progression [Unknown]
  - Breast cancer female [Unknown]
